FAERS Safety Report 19081047 (Version 1)
Quarter: 2021Q2

REPORT INFORMATION
  Report Type: Other
  Country: CA (occurrence: CA)
  Receive Date: 20210401
  Receipt Date: 20210401
  Transmission Date: 20210717
  Serious: Yes (Hospitalization, Other)
  Sender: FDA-Public Use
  Company Number: CA-CELLTRION INC.-2021CA004153

PATIENT

DRUGS (14)
  1. MYCOPHENOLATE MOFETIL. [Suspect]
     Active Substance: MYCOPHENOLATE MOFETIL
     Indication: GRANULOMATOSIS WITH POLYANGIITIS
     Dosage: 1000 MG, 2 EVERY 1 DAY
     Route: 048
  2. LASIX [Concomitant]
     Active Substance: FUROSEMIDE
     Dosage: 60 MG
     Route: 065
  3. MYCOPHENOLATE SODIUM [Concomitant]
     Active Substance: MYCOPHENOLATE SODIUM
     Dosage: 720 MG, 2 EVERY 1 DAY
     Route: 065
  4. TIOTROPIUM BROMIDE [Concomitant]
     Active Substance: TIOTROPIUM BROMIDE
  5. TRESIBA [Concomitant]
     Active Substance: INSULIN DEGLUDEC
     Route: 058
  6. MYCOPHENOLATE MOFETIL. [Suspect]
     Active Substance: MYCOPHENOLATE MOFETIL
     Indication: ANTI-NEUTROPHIL CYTOPLASMIC ANTIBODY POSITIVE VASCULITIS
  7. PANTOPRAZOLE [Concomitant]
     Active Substance: PANTOPRAZOLE
     Dosage: 4 MG, 1 EVERY 1 DAY
     Route: 065
  8. VENTOLIN [Concomitant]
     Active Substance: ALBUTEROL SULFATE
  9. RITUXIMAB (UNKNOWN) [Suspect]
     Active Substance: RITUXIMAB
     Indication: GRANULOMATOSIS WITH POLYANGIITIS
     Dosage: UNK
     Route: 042
  10. RITUXIMAB (UNKNOWN) [Suspect]
     Active Substance: RITUXIMAB
     Indication: ANTI-NEUTROPHIL CYTOPLASMIC ANTIBODY POSITIVE VASCULITIS
  11. DARBEPOETIN ALFA [Concomitant]
     Active Substance: DARBEPOETIN ALFA
  12. AMLODIPINE [Concomitant]
     Active Substance: AMLODIPINE BESYLATE
     Dosage: 10 MG
     Route: 065
  13. INSULIN HUMAN [Concomitant]
     Active Substance: INSULIN HUMAN
  14. PERINDOPRIL [Concomitant]
     Active Substance: PERINDOPRIL
     Dosage: 8 MG
     Route: 065

REACTIONS (5)
  - Anaemia [Unknown]
  - Mouth haemorrhage [Unknown]
  - Pulmonary renal syndrome [Unknown]
  - Bronchiectasis [Unknown]
  - Arthralgia [Unknown]
